FAERS Safety Report 7829460-0 (Version None)
Quarter: 2011Q4

REPORT INFORMATION
  Report Type: 
  Country: None (occurrence: None)
  Receive Date: 20111020
  Receipt Date: 20111005
  Transmission Date: 20120403
  Serious: Yes (Other)
  Sender: FDA-Public Use
  Company Number: JP-ROCHE-1003828

PATIENT
  Sex: Male

DRUGS (1)
  1. TAMIFLU [Suspect]
     Indication: PRODUCT USED FOR UNKNOWN INDICATION
     Route: 064
     Dates: start: 20091229, end: 20100101

REACTIONS (2)
  - MATERNAL EXPOSURE DURING PREGNANCY [None]
  - BLOOD THYROID STIMULATING HORMONE INCREASED [None]
